FAERS Safety Report 4286283-X (Version None)
Quarter: 2004Q1

REPORT INFORMATION
  Report Type: 
  Country: None (occurrence: None)
  Receive Date: 20040129
  Receipt Date: 20030617
  Transmission Date: 20041129
  Serious: Yes (Hospitalization)
  Sender: FDA-Public Use
  Company Number: A001-002-005671

PATIENT
  Age: 76 Year
  Sex: Female
  Weight: 57.7 kg

DRUGS (6)
  1. ARICEPT [Suspect]
     Indication: DEMENTIA ALZHEIMER'S TYPE
     Dosage: 5 MG, 1 IN 1 D, ORAL;10 MG, 1 IN 1 D, ORAL;5 MG, 1 IN 1 D, ORAL;10 MG, 1 IN 1 D, ORAL
     Route: 048
     Dates: start: 20020101, end: 20020101
  2. ARICEPT [Suspect]
     Indication: DEMENTIA ALZHEIMER'S TYPE
     Dosage: 5 MG, 1 IN 1 D, ORAL;10 MG, 1 IN 1 D, ORAL;5 MG, 1 IN 1 D, ORAL;10 MG, 1 IN 1 D, ORAL
     Route: 048
     Dates: start: 20020101, end: 20030101
  3. ARICEPT [Suspect]
     Indication: DEMENTIA ALZHEIMER'S TYPE
     Dosage: 5 MG, 1 IN 1 D, ORAL;10 MG, 1 IN 1 D, ORAL;5 MG, 1 IN 1 D, ORAL;10 MG, 1 IN 1 D, ORAL
     Route: 048
     Dates: start: 20030101, end: 20030101
  4. ARICEPT [Suspect]
     Indication: DEMENTIA ALZHEIMER'S TYPE
     Dosage: 5 MG, 1 IN 1 D, ORAL;10 MG, 1 IN 1 D, ORAL;5 MG, 1 IN 1 D, ORAL;10 MG, 1 IN 1 D, ORAL
     Route: 048
     Dates: start: 20030101
  5. RISPERDAL [Concomitant]
  6. TRAZODONE HCL [Concomitant]

REACTIONS (1)
  - HEADACHE [None]
